FAERS Safety Report 10143881 (Version 2)
Quarter: 2014Q2

REPORT INFORMATION
  Report Type: Report from Study
  Country: US (occurrence: US)
  Receive Date: 20140430
  Receipt Date: 20140508
  Transmission Date: 20141212
  Serious: Yes (Death, Hospitalization)
  Sender: FDA-Public Use
  Company Number: US-ASTELLAS-2014US004295

PATIENT
  Age: 85 Year
  Sex: Female

DRUGS (3)
  1. ERLOTINIB [Suspect]
     Indication: ADENOCARCINOMA PANCREAS
     Dosage: 100 MG ONCE DAILY
     Route: 048
     Dates: start: 20131125, end: 20140406
  2. GEMCITABINE [Suspect]
     Indication: ADENOCARCINOMA PANCREAS
     Dosage: 1000 MG/M2,OVER 30 MIN Q WK FOR WEEKS 1-3
     Route: 042
     Dates: start: 20131125
  3. GEMCITABINE [Suspect]
     Dosage: UNK UNK, UNKNOWN FREQ.
     Route: 042
     Dates: end: 20140331

REACTIONS (3)
  - Pulmonary fibrosis [Fatal]
  - Hypoxia [Not Recovered/Not Resolved]
  - Urinary tract infection [Not Recovered/Not Resolved]
